FAERS Safety Report 6691473-2 (Version None)
Quarter: 2010Q2

REPORT INFORMATION
  Report Type: 
  Country: None (occurrence: None)
  Receive Date: 20100422
  Receipt Date: 20100412
  Transmission Date: 20101027
  Serious: Yes (Hospitalization)
  Sender: FDA-Public Use
  Company Number: US-ABBOTT-10P-163-0637870-00

PATIENT
  Sex: Female
  Weight: 56.75 kg

DRUGS (8)
  1. HUMIRA [Suspect]
     Indication: RHEUMATOID ARTHRITIS
     Dates: start: 20090101
  2. CARVEDILOL [Concomitant]
     Indication: HYPERTENSION
  3. METHOTREXATE [Concomitant]
     Indication: RHEUMATOID ARTHRITIS
     Dosage: 8 - 2.5MG TABLETS/WEEK
     Dates: start: 20090101
  4. CYMBALTA [Concomitant]
     Indication: DEPRESSION
     Dates: start: 20100407
  5. HYDROCODONE BITARTRATE [Concomitant]
     Indication: PAIN
     Dosage: 10/325 MG 3 TIMES DAILY
  6. PHENERGAN [Concomitant]
     Indication: NAUSEA
     Dosage: AS NEEDED
  7. AMITRIPTYLINE [Concomitant]
     Indication: INSOMNIA
     Dosage: EVERY NIGHT
     Dates: start: 20100407
  8. ALPRAZOLAM [Concomitant]
     Indication: INSOMNIA
     Dosage: 3 TIMES DAILY, WEANING DOWN

REACTIONS (5)
  - ARTHRALGIA [None]
  - BLOOD MAGNESIUM DECREASED [None]
  - DEHYDRATION [None]
  - HYPERTENSION [None]
  - MIGRAINE [None]
